FAERS Safety Report 21003908 (Version 1)
Quarter: 2022Q2

REPORT INFORMATION
  Report Type: Spontaneous
  Country: US (occurrence: None)
  Receive Date: 20220624
  Receipt Date: 20220624
  Transmission Date: 20220721
  Serious: No
  Sender: FDA-Public Use
  Company Number: None

PATIENT
  Age: 63 Year
  Sex: Female

DRUGS (1)
  1. VEMLIDY [Suspect]
     Active Substance: TENOFOVIR ALAFENAMIDE FUMARATE
     Indication: Hepatitis B
     Dosage: FREQUENCY : DAILY;?
     Route: 048
     Dates: start: 20220512

REACTIONS (5)
  - Abdominal discomfort [None]
  - Dysuria [None]
  - Urinary tract infection [None]
  - Renal disorder [None]
  - Liver disorder [None]

NARRATIVE: CASE EVENT DATE: 20220618
